FAERS Safety Report 5008848-X (Version None)
Quarter: 2006Q2

REPORT INFORMATION
  Report Type: 
  Country: None (occurrence: None)
  Receive Date: 20060518
  Receipt Date: 20060508
  Transmission Date: 20061013
  Serious: Yes (Other)
  Sender: FDA-Public Use
  Company Number: 29156

PATIENT
  Age: 19 Year
  Sex: Female

DRUGS (1)
  1. IMIQUIMOD (IMIQUIMOD) [Suspect]
     Indication: SKIN PAPILLOMA
     Dosage: (1 UNSPEC., 3 IN 1 WEEK(S)), TOPICAL
     Route: 061
     Dates: start: 20051223

REACTIONS (3)
  - ABORTION SPONTANEOUS [None]
  - DRUG EXPOSURE DURING PREGNANCY [None]
  - PREGNANCY [None]
